FAERS Safety Report 5132449-6 (Version None)
Quarter: 2006Q4

REPORT INFORMATION
  Report Type: 
  Country: None (occurrence: None)
  Receive Date: 20061023
  Receipt Date: 20061010
  Transmission Date: 20070319
  Serious: Yes (Other)
  Sender: FDA-Public Use
  Company Number: PHFR2006GB03057

PATIENT
  Sex: Male

DRUGS (1)
  1. SLOW-K [Suspect]
     Dosage: 12 TABLETS DAILY
     Route: 048

REACTIONS (4)
  - DRUG DISPENSING ERROR [None]
  - FEELING ABNORMAL [None]
  - NAUSEA [None]
  - VOMITING [None]
